FAERS Safety Report 20176353 (Version 1)
Quarter: 2021Q4

REPORT INFORMATION
  Report Type: Spontaneous
  Country: US (occurrence: None)
  Receive Date: 20211210
  Receipt Date: 20211210
  Transmission Date: 20220303
  Serious: No
  Sender: FDA-Public Use
  Company Number: None

PATIENT
  Age: 69 Year
  Sex: Female
  Weight: 101.25 kg

DRUGS (1)
  1. RYBELSUS [Suspect]
     Active Substance: SEMAGLUTIDE
     Indication: Diabetes mellitus
     Route: 048
     Dates: start: 20211029, end: 20211205

REACTIONS (4)
  - Influenza [None]
  - Abdominal pain [None]
  - Insomnia [None]
  - Insurance issue [None]

NARRATIVE: CASE EVENT DATE: 20211029
